FAERS Safety Report 16673072 (Version 8)
Quarter: 2022Q1

REPORT INFORMATION
  Report Type: Report from Study
  Country: JP (occurrence: JP)
  Receive Date: 20190806
  Receipt Date: 20220210
  Transmission Date: 20220423
  Serious: No
  Sender: FDA-Public Use
  Company Number: JP-ABBVIE-18K-087-2330099-00

PATIENT
  Age: 64 Year
  Sex: Female

DRUGS (3)
  1. CARBIDOPA\LEVODOPA [Suspect]
     Active Substance: CARBIDOPA\LEVODOPA
     Indication: Parkinson^s disease
     Route: 050
     Dates: start: 20180224
  2. CARBIDOPA\LEVODOPA [Suspect]
     Active Substance: CARBIDOPA\LEVODOPA
  3. CARBIDOPA HYDRATE AND LEVODOPA [Concomitant]
     Indication: Parkinson^s disease
     Dates: start: 20190227, end: 20190404

REACTIONS (3)
  - Device occlusion [Unknown]
  - Abdominal distension [Unknown]
  - Stoma site infection [Unknown]
